FAERS Safety Report 6142616-0 (Version None)
Quarter: 2009Q2

REPORT INFORMATION
  Report Type: 
  Country: None (occurrence: None)
  Receive Date: 20090403
  Receipt Date: 20090330
  Transmission Date: 20091009
  Serious: Yes (Hospitalization)
  Sender: FDA-Public Use
  Company Number: FR-BAYER-200917525GPV

PATIENT
  Age: 28 Year
  Sex: Female

DRUGS (4)
  1. CIPROFLOXACIN HCL [Suspect]
     Indication: INFLUENZA
     Route: 048
     Dates: start: 20090120, end: 20090121
  2. PEFLACINE [Suspect]
     Indication: URINARY TRACT INFECTION
     Route: 048
     Dates: start: 20090110, end: 20090110
  3. PRIMALAN [Concomitant]
     Indication: INFLUENZA
     Route: 065
  4. DOLIPRANE [Concomitant]
     Indication: INFLUENZA
     Route: 065

REACTIONS (12)
  - BLOOD BILIRUBIN INCREASED [None]
  - DRUG RASH WITH EOSINOPHILIA AND SYSTEMIC SYMPTOMS [None]
  - ERYTHEMA [None]
  - EYELID OEDEMA [None]
  - HYPOTENSION [None]
  - LIVER DISORDER [None]
  - NAUSEA [None]
  - OEDEMA PERIPHERAL [None]
  - OLIGURIA [None]
  - PYREXIA [None]
  - RASH PRURITIC [None]
  - VOMITING [None]
